FAERS Safety Report 16765360 (Version 1)
Quarter: 2019Q3

REPORT INFORMATION
  Report Type: Report from Study
  Country: US (occurrence: US)
  Receive Date: 20190903
  Receipt Date: 20190903
  Transmission Date: 20191005
  Serious: Yes (Hospitalization)
  Sender: FDA-Public Use
  Company Number: US-B.I. PHARMACEUTICALS,INC./RIDGEFIELD-2015-BI-42774BP

PATIENT
  Age: 79 Year
  Sex: Male

DRUGS (6)
  1. OFEV [Suspect]
     Active Substance: NINTEDANIB
     Route: 048
     Dates: start: 20160224
  2. OFEV [Suspect]
     Active Substance: NINTEDANIB
     Route: 048
     Dates: start: 201907
  3. ESBRIET [Suspect]
     Active Substance: PIRFENIDONE
     Indication: PRODUCT USED FOR UNKNOWN INDICATION
     Route: 065
  4. OFEV [Suspect]
     Active Substance: NINTEDANIB
     Indication: IDIOPATHIC PULMONARY FIBROSIS
     Route: 048
     Dates: start: 20150715, end: 20150801
  5. OFEV [Suspect]
     Active Substance: NINTEDANIB
     Route: 048
  6. OFEV [Suspect]
     Active Substance: NINTEDANIB
     Route: 048
     Dates: start: 20160212

REACTIONS (34)
  - Ulcer haemorrhage [Unknown]
  - Decreased appetite [Unknown]
  - Dyspnoea [Not Recovered/Not Resolved]
  - Aphonia [Unknown]
  - Hypoaesthesia [Recovered/Resolved]
  - Otorrhoea [Unknown]
  - Tonsillitis [Not Recovered/Not Resolved]
  - Diarrhoea [Unknown]
  - Dyspnoea [Unknown]
  - Pyrexia [Unknown]
  - Productive cough [Unknown]
  - Dandruff [Unknown]
  - Product quality issue [Unknown]
  - Nasopharyngitis [Unknown]
  - Rhinorrhoea [Not Recovered/Not Resolved]
  - Weight decreased [Unknown]
  - Cough [Not Recovered/Not Resolved]
  - Abdominal pain [Unknown]
  - Asthenia [Unknown]
  - Epistaxis [Unknown]
  - Fatigue [Not Recovered/Not Resolved]
  - Taste disorder [Unknown]
  - Rhinorrhoea [Unknown]
  - Dyspnoea exertional [Unknown]
  - Respiratory rate decreased [Unknown]
  - Nasal congestion [Unknown]
  - Decreased appetite [Not Recovered/Not Resolved]
  - Diarrhoea [Not Recovered/Not Resolved]
  - Cough [Unknown]
  - Dizziness [Recovered/Resolved]
  - Chest discomfort [Unknown]
  - Weight decreased [Recovered/Resolved]
  - Secretion discharge [Unknown]
  - Nasal dryness [Unknown]

NARRATIVE: CASE EVENT DATE: 20160416
